FAERS Safety Report 8536658-5 (Version None)
Quarter: 2012Q3

REPORT INFORMATION
  Report Type: 
  Country: None (occurrence: None)
  Receive Date: 20120718
  Receipt Date: 20120718
  Transmission Date: 20120928
  Serious: Yes (Disabling)
  Sender: FDA-Public Use
  Company Number: None

PATIENT
  Sex: Female

DRUGS (1)
  1. HYDROGEN PEROXIDE SOLUTION [Suspect]
     Indication: TOOTH DISCOLOURATION
     Dosage: 1STRIP, 1XDAY, ORAL
     Route: 048
     Dates: end: 20120506

REACTIONS (2)
  - TOOTH DISCOLOURATION [None]
  - TOOTH FRACTURE [None]
